FAERS Safety Report 25502342 (Version 1)
Quarter: 2025Q3

REPORT INFORMATION
  Report Type: Report from Study
  Country: US (occurrence: US)
  Receive Date: 20250702
  Receipt Date: 20250702
  Transmission Date: 20251020
  Serious: Yes (Other)
  Sender: ACADIA PHARMACEUTICALS
  Company Number: US-ACADIA PHARMACEUTICALS INC.-ACA-2025-PIM-007690

PATIENT
  Sex: Female

DRUGS (10)
  1. NUPLAZID [Suspect]
     Active Substance: PIMAVANSERIN TARTRATE
     Indication: Hallucination
     Dosage: 34 MILLIGRAM, QD
     Route: 048
     Dates: start: 20250509
  2. CARVEDILOL [Concomitant]
     Active Substance: CARVEDILOL
  3. DONEPEZIL [Concomitant]
     Active Substance: DONEPEZIL
  4. FLUOXETINE [Concomitant]
     Active Substance: FLUOXETINE HYDROCHLORIDE
  5. HYDROCHLOROTHIAZIDE [Concomitant]
     Active Substance: HYDROCHLOROTHIAZIDE
  6. LOSARTAN POTASSIUM [Concomitant]
     Active Substance: LOSARTAN POTASSIUM
  7. OMEPRAZOLE [Concomitant]
     Active Substance: OMEPRAZOLE
  8. PREMARIN [Concomitant]
     Active Substance: ESTROGENS, CONJUGATED
  9. DIETARY SUPPLEMENT [Concomitant]
     Active Substance: DIETARY SUPPLEMENT
  10. VRAYLAR [Concomitant]
     Active Substance: CARIPRAZINE

REACTIONS (1)
  - Blindness [Not Recovered/Not Resolved]
